FAERS Safety Report 10041702 (Version 3)
Quarter: 2014Q2

REPORT INFORMATION
  Report Type: Spontaneous
  Country: US (occurrence: US)
  Receive Date: 20140327
  Receipt Date: 20140404
  Transmission Date: 20141212
  Serious: No
  Sender: FDA-Public Use
  Company Number: US-PFIZER INC-2014083373

PATIENT
  Age: 63 Year
  Sex: Male
  Weight: 90.7 kg

DRUGS (10)
  1. LYRICA [Suspect]
     Indication: BACK PAIN
     Dosage: 50 MG, 2X/DAY
     Route: 048
     Dates: start: 2014
  2. LYRICA [Suspect]
     Indication: PAIN IN EXTREMITY
     Dosage: 75 MG, 2X/DAY
     Route: 048
     Dates: start: 201403
  3. ENALAPRIL [Concomitant]
     Indication: HYPERTENSION
     Dosage: 10 MG, 2X/DAY
  4. ENALAPRIL [Concomitant]
     Dosage: 10 MG, UNK
  5. VITAMIN B3 [Concomitant]
     Dosage: UNK
  6. VITAMIN B12 [Concomitant]
     Dosage: UNK
  7. DICLOFENAC [Concomitant]
     Dosage: UNK
  8. OMEGA 3 [Concomitant]
     Dosage: UNK
  9. MAGNESIUM [Concomitant]
     Dosage: 400 MG, UNK
  10. CO Q10 [Concomitant]
     Dosage: UNK

REACTIONS (1)
  - Drug ineffective [Unknown]
